FAERS Safety Report 11732617 (Version 1)
Quarter: 2015Q4

REPORT INFORMATION
  Report Type: Spontaneous
  Country: US (occurrence: US)
  Receive Date: 20151110
  Receipt Date: 20151110
  Transmission Date: 20160304
  Serious: No
  Sender: FDA-Public Use
  Company Number: US-ELI_LILLY_AND_COMPANY-US201204008363

PATIENT
  Age: 77 Year
  Sex: Female

DRUGS (1)
  1. FORTEO [Suspect]
     Active Substance: TERIPARATIDE
     Indication: OSTEOPOROSIS

REACTIONS (10)
  - Burning sensation [Unknown]
  - Arthralgia [Unknown]
  - Bone pain [Unknown]
  - Eating disorder [Unknown]
  - Pain [Unknown]
  - Asthenia [Unknown]
  - Muscular weakness [Unknown]
  - Movement disorder [Unknown]
  - Dysstasia [Unknown]
  - Gait disturbance [Unknown]
